FAERS Safety Report 7411257-7 (Version None)
Quarter: 2011Q2

REPORT INFORMATION
  Report Type: 
  Country: None (occurrence: None)
  Receive Date: 20110413
  Receipt Date: 20100524
  Transmission Date: 20111010
  Serious: Yes (Other)
  Sender: FDA-Public Use
  Company Number: US-BRISTOL-MYERS SQUIBB COMPANY-15087091

PATIENT
  Age: 60 Year
  Sex: Male

DRUGS (2)
  1. ERBITUX [Suspect]
     Indication: HEAD AND NECK CANCER
     Dosage: 3WKS AGO
     Route: 042
     Dates: start: 20100412, end: 20100401
  2. ERBITUX [Suspect]
     Indication: LIP AND/OR ORAL CAVITY CANCER
     Dosage: 3WKS AGO
     Route: 042
     Dates: start: 20100412, end: 20100401

REACTIONS (3)
  - HYPOTENSION [None]
  - RASH [None]
  - URTICARIA [None]
